FAERS Safety Report 7514205-4 (Version None)
Quarter: 2011Q2

REPORT INFORMATION
  Report Type: 
  Country: None (occurrence: None)
  Receive Date: 20110531
  Receipt Date: 20110523
  Transmission Date: 20111010
  Serious: Yes (Hospitalization, Other)
  Sender: FDA-Public Use
  Company Number: NL-BAXTER-2011BH017033

PATIENT
  Age: 64 Year
  Sex: Female

DRUGS (9)
  1. EPIRUBICIN HYDROCHLORIDE [Suspect]
     Indication: BREAST CANCER
     Route: 065
  2. FLURAZEPAM [Concomitant]
     Indication: DEPRESSION
     Route: 065
  3. CYCLOPHOSPHAMIDE [Suspect]
     Indication: BREAST CANCER
     Route: 065
  4. ALPRAZOLAM [Concomitant]
     Indication: DEPRESSION
     Route: 065
  5. DEXAMETHASONE [Concomitant]
     Indication: ANTIEMETIC SUPPORTIVE CARE
     Route: 065
  6. CITALOPRAM HYDROBROMIDE [Suspect]
     Indication: DEPRESSION
     Route: 065
  7. FLUOROURACIL [Suspect]
     Indication: BREAST CANCER
     Route: 065
  8. ONDANSETRON [Concomitant]
     Indication: ANTIEMETIC SUPPORTIVE CARE
     Route: 065
  9. ISOTONIC SALINE [Concomitant]
     Indication: FLUID REPLACEMENT
     Route: 065

REACTIONS (2)
  - HYPONATRAEMIA [None]
  - CONVULSION [None]
